FAERS Safety Report 4813652-9 (Version None)
Quarter: 2005Q4

REPORT INFORMATION
  Report Type: 
  Country: None (occurrence: None)
  Receive Date: 20051028
  Receipt Date: 20050112
  Transmission Date: 20060501
  Serious: No
  Sender: FDA-Public Use
  Company Number: US-GLAXOSMITHKLINE-A0540428A

PATIENT
  Sex: Male

DRUGS (6)
  1. IMITREX [Suspect]
     Indication: MIGRAINE
     Dosage: 20MG PER DAY
     Route: 045
  2. PERCOCET [Concomitant]
  3. CELEBREX [Concomitant]
  4. LORAZEPAM [Concomitant]
  5. MELATONIN [Concomitant]
  6. WELLBUTRIN XL [Concomitant]

REACTIONS (4)
  - DRUG INEFFECTIVE [None]
  - FLUSHING [None]
  - INSOMNIA [None]
  - PALPITATIONS [None]
